FAERS Safety Report 7961307-4 (Version None)
Quarter: 2011Q4

REPORT INFORMATION
  Report Type: 
  Country: None (occurrence: None)
  Receive Date: 20111202
  Receipt Date: 20111117
  Transmission Date: 20120403
  Serious: Yes (Other)
  Sender: FDA-Public Use
  Company Number: 2011S1000366

PATIENT
  Age: 1 Month
  Sex: Male
  Weight: 1250 kg

DRUGS (11)
  1. SODIUM CHLORIDE [Concomitant]
  2. PIPERACILLIN AND TAZOBACTAM [Concomitant]
  3. GENTAMICIN [Concomitant]
  4. DOPAMINE HCL [Concomitant]
  5. NITRIC OXIDE [Suspect]
     Indication: BRONCHOPULMONARY DYSPLASIA
     Dosage: 20 PPM;CONT;INH ; 18 PPM;CONT;INH ; 10 PPM;CONT;INH ; 5 PPM;CONT'INH
     Route: 055
     Dates: start: 20111019, end: 20111029
  6. NITRIC OXIDE [Suspect]
     Indication: BRONCHOPULMONARY DYSPLASIA
     Dosage: 20 PPM;CONT;INH ; 18 PPM;CONT;INH ; 10 PPM;CONT;INH ; 5 PPM;CONT'INH
     Route: 055
     Dates: start: 20111011, end: 20111014
  7. NITRIC OXIDE [Suspect]
     Indication: BRONCHOPULMONARY DYSPLASIA
     Dosage: 20 PPM;CONT;INH ; 18 PPM;CONT;INH ; 10 PPM;CONT;INH ; 5 PPM;CONT'INH
     Route: 055
     Dates: start: 20111029, end: 20111104
  8. NITRIC OXIDE [Suspect]
     Indication: BRONCHOPULMONARY DYSPLASIA
     Dosage: 20 PPM;CONT;INH ; 18 PPM;CONT;INH ; 10 PPM;CONT;INH ; 5 PPM;CONT'INH
     Route: 055
     Dates: start: 20111014, end: 20111019
  9. FUROSEMIDE [Concomitant]
  10. CAFFEINE CITRATE [Concomitant]
  11. AMPICILLIN [Concomitant]

REACTIONS (2)
  - PATENT DUCTUS ARTERIOSUS [None]
  - CONDITION AGGRAVATED [None]
